FAERS Safety Report 14939599 (Version 2)
Quarter: 2018Q3

REPORT INFORMATION
  Report Type: Spontaneous
  Country: DE (occurrence: DE)
  Receive Date: 20180525
  Receipt Date: 20180703
  Transmission Date: 20181010
  Serious: Yes (Hospitalization, Other)
  Sender: FDA-Public Use
  Company Number: PHHY2018DE004472

PATIENT
  Sex: Female

DRUGS (2)
  1. GILENYA [Suspect]
     Active Substance: FINGOLIMOD HYDROCHLORIDE
     Indication: MULTIPLE SCLEROSIS
     Dosage: 0.5 MG, QD
     Route: 048
     Dates: start: 2012
  2. FAMPYRA [Concomitant]
     Active Substance: DALFAMPRIDINE
     Indication: GAIT DISTURBANCE
     Dosage: 20 MG, QD
     Route: 065
     Dates: start: 201211

REACTIONS (8)
  - Vulval cancer stage III [Recovered/Resolved]
  - Cervical cyst [Unknown]
  - Adenomyosis [Unknown]
  - Endometrial disorder [Unknown]
  - Human papilloma virus test positive [Recovered/Resolved]
  - Vulvovaginal adenosis [Unknown]
  - Leiomyoma [Unknown]
  - Cervicitis [Unknown]

NARRATIVE: CASE EVENT DATE: 20180222
